FAERS Safety Report 8175775-9 (Version None)
Quarter: 2012Q1

REPORT INFORMATION
  Report Type: 
  Country: None (occurrence: None)
  Receive Date: 20120228
  Receipt Date: 20120214
  Transmission Date: 20120608
  Serious: Yes (Life-Threatening, Hospitalization)
  Sender: FDA-Public Use
  Company Number: AMLO20120003

PATIENT
  Age: 25 Year
  Sex: Female

DRUGS (1)
  1. AMLODIPINE BESYLATE [Suspect]
     Indication: PRODUCT USED FOR UNKNOWN INDICATION
     Dosage: 400 MG ONCE, ORAL
     Route: 048

REACTIONS (9)
  - SHOCK [None]
  - HEART RATE INCREASED [None]
  - HYPOTENSION [None]
  - HYPOGLYCAEMIA [None]
  - BLOOD PH DECREASED [None]
  - OVERDOSE [None]
  - SINUS TACHYCARDIA [None]
  - LETHARGY [None]
  - PO2 INCREASED [None]
